FAERS Safety Report 10256588 (Version 1)
Quarter: 2014Q2

REPORT INFORMATION
  Report Type: Spontaneous
  Country: GR (occurrence: GR)
  Receive Date: 20140624
  Receipt Date: 20140624
  Transmission Date: 20141212
  Serious: Yes (Hospitalization)
  Sender: FDA-Public Use
  Company Number: GR-ABBVIE-14P-066-1250691-00

PATIENT
  Age: 18 Year
  Sex: Female

DRUGS (1)
  1. KLARICID [Suspect]
     Indication: SUICIDE ATTEMPT
     Dosage: 5 TABLETS AT ONCE
     Dates: start: 20140614, end: 20140614

REACTIONS (2)
  - Suicide attempt [Unknown]
  - Overdose [Recovered/Resolved]
